FAERS Safety Report 18221698 (Version 1)
Quarter: 2020Q3

REPORT INFORMATION
  Report Type: Spontaneous
  Country: US (occurrence: US)
  Receive Date: 20200902
  Receipt Date: 20200902
  Transmission Date: 20201103
  Serious: No
  Sender: FDA-Public Use
  Company Number: US-DECIPHERA PHARMACEUTICALS LLC-2020-US-000290

PATIENT
  Sex: Female
  Weight: 43.08 kg

DRUGS (1)
  1. QINLOCK [Suspect]
     Active Substance: RIPRETINIB
     Indication: SMALL INTESTINE CARCINOMA
     Dosage: 150 MILLIGRAM, QD
     Route: 048

REACTIONS (4)
  - Pruritus [Unknown]
  - Rash [Recovered/Resolved]
  - Alopecia [Unknown]
  - Constipation [Unknown]
